FAERS Safety Report 17987482 (Version 5)
Quarter: 2020Q4

REPORT INFORMATION
  Report Type: Report from Study
  Country: US (occurrence: US)
  Receive Date: 20200707
  Receipt Date: 20201209
  Transmission Date: 20210113
  Serious: Yes (Other)
  Sender: FDA-Public Use
  Company Number: US-GLAXOSMITHKLINE-US2020AMR022701

PATIENT
  Sex: Female

DRUGS (6)
  1. NIRAPARIB [Suspect]
     Active Substance: NIRAPARIB
     Dosage: 200 MG, QD
     Dates: start: 20200703
  2. NIRAPARIB [Suspect]
     Active Substance: NIRAPARIB
     Indication: RECTOSIGMOID CANCER
     Dosage: 200 MG, QD
     Dates: start: 201910
  3. NIRAPARIB [Suspect]
     Active Substance: NIRAPARIB
     Indication: MALIGNANT PERITONEAL NEOPLASM
     Dosage: 200 MG, QD
     Route: 048
     Dates: start: 20191109
  4. NIRAPARIB [Suspect]
     Active Substance: NIRAPARIB
     Dosage: 200 MG, QD
     Dates: start: 20201109
  5. NIRAPARIB [Suspect]
     Active Substance: NIRAPARIB
     Dosage: 200 MG, QD
     Dates: start: 20200706
  6. NIRAPARIB [Suspect]
     Active Substance: NIRAPARIB
     Dosage: 200 MG, QD
     Dates: start: 20191109, end: 20200626

REACTIONS (18)
  - Heart rate increased [Recovering/Resolving]
  - Diarrhoea [Unknown]
  - Off label use [Unknown]
  - Dyspepsia [Unknown]
  - Pain [Unknown]
  - Nausea [Unknown]
  - Fatigue [Not Recovered/Not Resolved]
  - Ill-defined disorder [Unknown]
  - Malignant neoplasm progression [Not Recovered/Not Resolved]
  - Insomnia [Not Recovered/Not Resolved]
  - Mobility decreased [Unknown]
  - Diverticulitis [Unknown]
  - Product dose omission issue [Unknown]
  - Hypertension [Recovering/Resolving]
  - Pelvic neoplasm [Not Recovered/Not Resolved]
  - Metastatic neoplasm [Unknown]
  - Constipation [Unknown]
  - Product use in unapproved indication [Unknown]
